FAERS Safety Report 7906508-6 (Version None)
Quarter: 2011Q4

REPORT INFORMATION
  Report Type: 
  Country: None (occurrence: None)
  Receive Date: 20111110
  Receipt Date: 20111028
  Transmission Date: 20120403
  Serious: Yes (Other)
  Sender: FDA-Public Use
  Company Number: US-ELI_LILLY_AND_COMPANY-US201103007704

PATIENT
  Sex: Female

DRUGS (12)
  1. FORTEO [Suspect]
     Indication: OSTEOPOROSIS
     Dosage: 20 UG, QD
     Route: 065
     Dates: start: 20101201
  2. REMICAIDE [Concomitant]
  3. CALCIUM [Concomitant]
     Indication: SUPPLEMENTATION THERAPY
  4. PREDNISONE TAB [Concomitant]
     Indication: CROHN'S DISEASE
  5. METHOTREXATE [Concomitant]
  6. NORCO [Concomitant]
  7. MORPHINE [Concomitant]
  8. FOLIC ACID [Concomitant]
  9. KLONOPIN [Concomitant]
  10. LEXAPRO [Concomitant]
  11. PLAQUENIL [Concomitant]
  12. VITAMIN D [Concomitant]
     Indication: SUPPLEMENTATION THERAPY

REACTIONS (5)
  - HIP FRACTURE [None]
  - BONE DISORDER [None]
  - OSTEONECROSIS [None]
  - BONE PAIN [None]
  - FIBULA FRACTURE [None]
